FAERS Safety Report 9404532 (Version 1)
Quarter: 2013Q3

REPORT INFORMATION
  Report Type: Spontaneous
  Country: US (occurrence: None)
  Receive Date: 20130715
  Receipt Date: 20130715
  Transmission Date: 20140515
  Serious: Yes (Life-Threatening, Other)
  Sender: FDA-Public Use
  Company Number: MC201300328

PATIENT
  Age: 64 Year
  Sex: Male
  Weight: 102 kg

DRUGS (8)
  1. ANGIOMAX [Suspect]
     Indication: PERCUTANEOUS CORONARY INTERVENTION
     Dosage: 76.5 MG (0.75 MG/KG) BOLUS, INTRAVENOUS?
     Route: 040
     Dates: start: 20130307, end: 20130307
  2. ASPIRIN [Concomitant]
  3. BRILINTA [Concomitant]
  4. NITROGLYCERIN [Concomitant]
  5. FENTANYL [Concomitant]
  6. LIDOCAINE [Concomitant]
  7. ZOFRAN [Concomitant]
  8. ISOVUE [Concomitant]

REACTIONS (3)
  - Ventricular fibrillation [None]
  - Acute myocardial infarction [None]
  - Thrombosis in device [None]
